FAERS Safety Report 4458054-2 (Version None)
Quarter: 2004Q3

REPORT INFORMATION
  Report Type: 
  Country: None (occurrence: None)
  Receive Date: 20040922
  Receipt Date: 20040915
  Transmission Date: 20050211
  Serious: Yes (Hospitalization)
  Sender: FDA-Public Use
  Company Number: DEWYE041415SEP04

PATIENT
  Age: 46 Year
  Sex: Female

DRUGS (1)
  1. EFFEXOR XR [Suspect]
     Indication: DEPRESSION
     Dosage: 1 CAPSULE ORAL
     Route: 048
     Dates: start: 20040826, end: 20040826

REACTIONS (1)
  - PANIC ATTACK [None]
